FAERS Safety Report 9654350 (Version 2)
Quarter: 2013Q4

REPORT INFORMATION
  Report Type: Spontaneous
  Country: US (occurrence: None)
  Receive Date: 20131015
  Receipt Date: 20131029
  Transmission Date: 20140711
  Serious: Yes (Hospitalization)
  Sender: FDA-Public Use
  Company Number: 2012033467

PATIENT
  Sex: Female

DRUGS (1)
  1. ZEMAIRA [Suspect]
     Route: 042

REACTIONS (10)
  - Malaise [None]
  - Headache [None]
  - Dizziness [None]
  - Hypertension [None]
  - Hypotension [None]
  - Stress [None]
  - Asthenia [None]
  - Diverticular perforation [None]
  - Diarrhoea [None]
  - Haemorrhoids [None]
